FAERS Safety Report 26167147 (Version 1)
Quarter: 2025Q4

REPORT INFORMATION
  Report Type: Spontaneous
  Country: US (occurrence: US)
  Receive Date: 20251217
  Receipt Date: 20251217
  Transmission Date: 20260117
  Serious: No
  Sender: GLAXOSMITHKLINE
  Company Number: US-GSK-US2025158291

PATIENT
  Age: 77 Year
  Sex: Female

DRUGS (2)
  1. BLUJEPA [Suspect]
     Active Substance: GEPOTIDACIN MESYLATE
     Indication: Urinary tract infection bacterial
     Dosage: 4 DF, QD, 750 MG X 5 DAYS
     Dates: start: 20251103
  2. AMOXICILLIN\CLAVULANIC ACID [Concomitant]
     Active Substance: AMOXICILLIN\CLAVULANIC ACID
     Indication: Product used for unknown indication
     Dosage: UNK, ONE WEEK OF RELIEF

REACTIONS (1)
  - Dysuria [Not Recovered/Not Resolved]
